FAERS Safety Report 6399942-X (Version None)
Quarter: 2009Q4

REPORT INFORMATION
  Report Type: 
  Country: None (occurrence: None)
  Receive Date: 20091008
  Receipt Date: 20091008
  Transmission Date: 20100525
  Serious: Yes (Other)
  Sender: FDA-Public Use
  Company Number: None

PATIENT
  Age: 51 Year
  Sex: Female
  Weight: 56.6996 kg

DRUGS (1)
  1. RETIN-A [Suspect]
     Indication: SEBACEOUS HYPERPLASIA
     Dosage: TOPICAL ONCE DAILY TOP
     Route: 061
     Dates: start: 20090719, end: 20090901

REACTIONS (8)
  - ERYTHEMA [None]
  - FEELING ABNORMAL [None]
  - HEADACHE [None]
  - HYPERPLASIA [None]
  - PAIN [None]
  - SKIN DISCOLOURATION [None]
  - SPEECH DISORDER [None]
  - SWELLING [None]
